FAERS Safety Report 17779430 (Version 2)
Quarter: 2020Q2

REPORT INFORMATION
  Report Type: Spontaneous
  Country: US (occurrence: US)
  Receive Date: 20200513
  Receipt Date: 20200610
  Transmission Date: 20200714
  Serious: No
  Sender: FDA-Public Use
  Company Number: US-009507513-2004USA004353

PATIENT

DRUGS (2)
  1. CUBICIN RF [Suspect]
     Active Substance: DAPTOMYCIN
     Dosage: 500 MILLIGRAM, QD; FORMULATION ALSO REPORTED AS 50 MG/ML VIAL
  2. STERILE DILUENT (WATER) [Concomitant]
     Active Substance: WATER
     Dosage: 10 MILLILITER

REACTIONS (3)
  - Product packaging quantity issue [Unknown]
  - Underdose [Unknown]
  - No adverse event [Unknown]
